FAERS Safety Report 18472218 (Version 2)
Quarter: 2022Q2

REPORT INFORMATION
  Report Type: Spontaneous
  Country: IE (occurrence: IE)
  Receive Date: 20201106
  Receipt Date: 20220403
  Transmission Date: 20220720
  Serious: Yes (Hospitalization)
  Sender: FDA-Public Use
  Company Number: IE-BAXTER-2020BAX021113

PATIENT
  Age: 37 Year
  Sex: Female
  Weight: 65.5 kg

DRUGS (3)
  1. MEROPENEM [Suspect]
     Active Substance: MEROPENEM
     Indication: Osteomyelitis
     Dosage: 1 GRAM, ONCE A DAY
     Route: 042
     Dates: start: 20201008
  2. MEROPENEM [Suspect]
     Active Substance: MEROPENEM
     Dosage: 3 GRAM, ONCE A DAY
     Route: 042
     Dates: start: 20201008
  3. DAPTOMYCIN [Suspect]
     Active Substance: DAPTOMYCIN
     Indication: Product used for unknown indication
     Dosage: 650 MILLIGRAM, ONCE A DAY
     Route: 042

REACTIONS (3)
  - Pain [Not Recovered/Not Resolved]
  - Headache [Not Recovered/Not Resolved]
  - Dyspnoea [Not Recovered/Not Resolved]

NARRATIVE: CASE EVENT DATE: 20201012
